APPROVED DRUG PRODUCT: FELBAMATE
Active Ingredient: FELBAMATE
Strength: 600MG/5ML
Dosage Form/Route: SUSPENSION;ORAL
Application: A211333 | Product #001 | TE Code: AB
Applicant: NOVITIUM PHARMA LLC
Approved: May 31, 2019 | RLD: No | RS: Yes | Type: RX